FAERS Safety Report 13828312 (Version 1)
Quarter: 2017Q3

REPORT INFORMATION
  Report Type: Spontaneous
  Country: US (occurrence: US)
  Receive Date: 20170803
  Receipt Date: 20170803
  Transmission Date: 20171127
  Serious: No
  Sender: FDA-Public Use
  Company Number: US-PFIZER INC-2017335967

PATIENT
  Sex: Female

DRUGS (1)
  1. XELJANZ XR [Suspect]
     Active Substance: TOFACITINIB CITRATE
     Dosage: 11 MG, UNK

REACTIONS (16)
  - Pain [Unknown]
  - Joint range of motion decreased [Unknown]
  - Loss of personal independence in daily activities [Unknown]
  - Asthenia [Unknown]
  - Platelet count increased [Unknown]
  - Urine abnormality [Unknown]
  - Rheumatoid factor increased [Unknown]
  - C-reactive protein increased [Unknown]
  - Insomnia [Unknown]
  - Arthralgia [Unknown]
  - Tenderness [Unknown]
  - Swelling [Unknown]
  - White blood cell disorder [Unknown]
  - Oropharyngeal pain [Unknown]
  - Musculoskeletal stiffness [Unknown]
  - Urine analysis abnormal [Unknown]
